FAERS Safety Report 9442877 (Version 1)
Quarter: 2013Q3

REPORT INFORMATION
  Report Type: Spontaneous
  Country: US (occurrence: US)
  Receive Date: 20130806
  Receipt Date: 20130806
  Transmission Date: 20140515
  Serious: Yes (Other)
  Sender: FDA-Public Use
  Company Number: US-ACTAVIS-2013-13128

PATIENT
  Age: 13 Year
  Sex: Male
  Weight: 51 kg

DRUGS (7)
  1. RISPERIDONE (WATSON LABORATORIES) [Suspect]
     Indication: PRODUCT USED FOR UNKNOWN INDICATION
     Dosage: 0.5 MG, AT BEDTIME
     Route: 065
  2. ARIPIPRAZOLE (UNKNOWN) [Suspect]
     Indication: PRODUCT USED FOR UNKNOWN INDICATION
     Dosage: 2.5 MG, QAM
     Route: 065
  3. INSULIN LISPRO [Concomitant]
     Indication: TYPE 1 DIABETES MELLITUS
     Dosage: UNK, BEFORE MEALS
     Route: 058
  4. INSULIN GLARGINE [Concomitant]
     Indication: TYPE 1 DIABETES MELLITUS
     Dosage: UNK, AT BEDTIME
     Route: 058
  5. GUANFACINE [Concomitant]
     Indication: PRODUCT USED FOR UNKNOWN INDICATION
     Dosage: 0.5 MG, BID
     Route: 065
  6. ERGOCALCIFEROL [Concomitant]
     Indication: PRODUCT USED FOR UNKNOWN INDICATION
     Dosage: 1000 U, DAILY
     Route: 065
  7. DIPHENHYDRAMINE [Concomitant]
     Indication: SLEEP DISORDER
     Dosage: 25 MG, AT BEDTINE
     Route: 065

REACTIONS (1)
  - Hyperglycaemia [Recovered/Resolved]
